FAERS Safety Report 25404087 (Version 1)
Quarter: 2025Q2

REPORT INFORMATION
  Report Type: Spontaneous
  Country: GB (occurrence: GB)
  Receive Date: 20250606
  Receipt Date: 20250606
  Transmission Date: 20250716
  Serious: Yes (Hospitalization, Other)
  Sender: NOVO NORDISK
  Company Number: None

PATIENT
  Sex: Female

DRUGS (2)
  1. WEGOVY [Suspect]
     Active Substance: SEMAGLUTIDE
     Indication: Weight control
  2. SERTRALINE [Concomitant]
     Active Substance: SERTRALINE HYDROCHLORIDE
     Indication: Product used for unknown indication

REACTIONS (3)
  - Nephrolithiasis [Recovering/Resolving]
  - Sepsis [Recovering/Resolving]
  - Hospitalisation [Recovering/Resolving]
